FAERS Safety Report 11913648 (Version 2)
Quarter: 2016Q1

REPORT INFORMATION
  Report Type: Spontaneous
  Country: US (occurrence: US)
  Receive Date: 20160113
  Receipt Date: 20160205
  Transmission Date: 20160526
  Serious: No
  Sender: FDA-Public Use
  Company Number: US-PFIZER INC-2015476338

PATIENT
  Age: 78 Year
  Sex: Female

DRUGS (2)
  1. NORVASC [Concomitant]
     Active Substance: AMLODIPINE BESYLATE
     Dosage: UNK
  2. IBRANCE [Suspect]
     Active Substance: PALBOCICLIB
     Dosage: 100 MG, CYCLIC (DAILY FOR 21 DAYS, OFF 7 DAYS)
     Dates: start: 20151003

REACTIONS (3)
  - Nausea [Unknown]
  - Diarrhoea [Unknown]
  - Product use issue [Unknown]
